FAERS Safety Report 4542837-4 (Version None)
Quarter: 2004Q4

REPORT INFORMATION
  Report Type: 
  Country: None (occurrence: None)
  Receive Date: 20041229
  Receipt Date: 20041216
  Transmission Date: 20050328
  Serious: Yes (Death, Hospitalization, Other)
  Sender: FDA-Public Use
  Company Number: USA-2004-0014093

PATIENT
  Age: 47 Year
  Sex: Male
  Weight: 95.2 kg

DRUGS (21)
  1. OXYCONTIN [Suspect]
     Indication: PAIN
     Dosage: SEE IMAGE
     Route: 048
  2. HYDROCODONE BITARTRATE    (HYDROCODONE BITARTRATE) [Suspect]
  3. DIHYDROCODEINE/CAFFEINE/ACETAMINOPHEN  (PARCETAMOL, CAFFEINE, DIHYDROC [Suspect]
  4. METHADONE HCL [Suspect]
  5. VALIUM [Suspect]
  6. NICOTINE [Suspect]
  7. DOXEPIN HCL [Suspect]
  8. ELAVIL [Concomitant]
  9. TOPAMAX [Concomitant]
  10. SONATA [Concomitant]
  11. PREDNISONE [Concomitant]
  12. LORTAB [Concomitant]
  13. LORCET-HD [Concomitant]
  14. AMERGE [Concomitant]
  15. PROPRANOLOL [Concomitant]
  16. DEPAKOTE [Concomitant]
  17. IMITREX [Concomitant]
  18. ULTRAM [Concomitant]
  19. XANAX [Concomitant]
  20. FLEXERIL (CYCLOBENAZAPRINE HYDROCHLORIDE) [Concomitant]
  21. VIAGRA [Concomitant]

REACTIONS (54)
  - ACCIDENT AT WORK [None]
  - ACCIDENTAL EXPOSURE [None]
  - ANOREXIA [None]
  - ANXIETY [None]
  - ARTHRALGIA [None]
  - ASTHENIA [None]
  - COMPLEX PARTIAL SEIZURES [None]
  - CONDITION AGGRAVATED [None]
  - CONFUSIONAL STATE [None]
  - CONVULSION [None]
  - DEAFNESS [None]
  - DEPRESSION [None]
  - DISTURBANCE IN ATTENTION [None]
  - DIZZINESS [None]
  - DRUG ABUSER [None]
  - DRUG DEPENDENCE [None]
  - DRUG INEFFECTIVE [None]
  - DYSARTHRIA [None]
  - EAR PAIN [None]
  - ELECTROCUTION [None]
  - ERECTILE DYSFUNCTION [None]
  - ERYTHEMA [None]
  - EYE PAIN [None]
  - GAS POISONING [None]
  - HALLUCINATIONS, MIXED [None]
  - HEAD INJURY [None]
  - HEADACHE [None]
  - INNER EAR DISORDER [None]
  - INSOMNIA [None]
  - LOSS OF CONSCIOUSNESS [None]
  - MALAISE [None]
  - MENTAL STATUS CHANGES [None]
  - MULTIPLE DRUG OVERDOSE ACCIDENTAL [None]
  - NASOPHARYNGEAL DISORDER [None]
  - NAUSEA [None]
  - NECK PAIN [None]
  - PAIN [None]
  - PAIN IN EXTREMITY [None]
  - PAIN IN JAW [None]
  - PALPITATIONS [None]
  - PARAESTHESIA [None]
  - PETECHIAE [None]
  - PHOTOPHOBIA [None]
  - PO2 DECREASED [None]
  - PYREXIA [None]
  - REFLEX SYMPATHETIC DYSTROPHY [None]
  - SLEEP APNOEA SYNDROME [None]
  - SLEEP DISORDER [None]
  - SNORING [None]
  - SOMNOLENCE [None]
  - SPEECH DISORDER [None]
  - SUICIDAL IDEATION [None]
  - TINNITUS [None]
  - VOMITING [None]
